FAERS Safety Report 10076091 (Version 2)
Quarter: 2014Q2

REPORT INFORMATION
  Report Type: Spontaneous
  Country: US (occurrence: US)
  Receive Date: 20140414
  Receipt Date: 20140502
  Transmission Date: 20141212
  Serious: No
  Sender: FDA-Public Use
  Company Number: US-PFIZER INC-2014100099

PATIENT
  Age: 62 Year
  Sex: Male
  Weight: 86.2 kg

DRUGS (4)
  1. VIAGRA [Suspect]
     Indication: ERECTILE DYSFUNCTION
     Dosage: 50 MG, AS NEEDED
     Route: 048
     Dates: start: 2008
  2. VIAGRA [Suspect]
     Dosage: 50 MG (100MG TABLET BY CUTTING IT INTO HALF), AS NEEDED
     Route: 048
  3. VIAGRA [Suspect]
     Dosage: 100 MG, AS NEEDED
     Route: 048
  4. SYNTHROID [Concomitant]
     Indication: THYROID DISORDER
     Dosage: UNK

REACTIONS (2)
  - Suspected counterfeit product [Not Recovered/Not Resolved]
  - Diarrhoea [Not Recovered/Not Resolved]
